FAERS Safety Report 20935969 (Version 1)
Quarter: 2022Q2

REPORT INFORMATION
  Report Type: Report from Study
  Country: US (occurrence: US)
  Receive Date: 20220609
  Receipt Date: 20220609
  Transmission Date: 20220721
  Serious: Yes (Death, Other)
  Sender: FDA-Public Use
  Company Number: US-SUN PHARMACEUTICAL INDUSTRIES LTD-2022R1-338571

PATIENT
  Age: 55 Year
  Sex: Female

DRUGS (2)
  1. AMIFOSTINE [Suspect]
     Active Substance: AMIFOSTINE
     Indication: Myelodysplastic syndrome
     Dosage: UNK
     Route: 065
  2. INTERLEUKIN NOS [Suspect]
     Active Substance: INTERLEUKIN NOS
     Indication: Myelodysplastic syndrome
     Dosage: UNK
     Route: 065

REACTIONS (2)
  - Hepatic failure [Fatal]
  - Hepatocellular carcinoma [Unknown]
